FAERS Safety Report 24650850 (Version 1)
Quarter: 2024Q4

REPORT INFORMATION
  Report Type: Spontaneous
  Country: TR (occurrence: TR)
  Receive Date: 20241122
  Receipt Date: 20241122
  Transmission Date: 20250114
  Serious: No
  Sender: ALKEM
  Company Number: TR-ALKEM LABORATORIES LIMITED-TR-ALKEM-2024-16343

PATIENT
  Age: 10 Year
  Sex: Male

DRUGS (1)
  1. OLANZAPINE [Suspect]
     Active Substance: OLANZAPINE
     Indication: Bruxism
     Dosage: 2.5 MILLIGRAM, OD
     Route: 065

REACTIONS (2)
  - Increased appetite [Unknown]
  - Hypersomnia [Unknown]
